FAERS Safety Report 6307919-5 (Version None)
Quarter: 2009Q3

REPORT INFORMATION
  Report Type: 
  Country: None (occurrence: None)
  Receive Date: 20090813
  Receipt Date: 20090804
  Transmission Date: 20100115
  Serious: Yes (Hospitalization)
  Sender: FDA-Public Use
  Company Number: JP-JNJFOC-20090803296

PATIENT
  Sex: Male

DRUGS (5)
  1. CRAVIT 100 MG [Suspect]
     Indication: INFECTION PROPHYLAXIS
     Route: 048
  2. DD-723 (PERFLUBUTANE) [Suspect]
     Indication: PROSTATE CANCER
     Dosage: 0.36 MCL MB/KG
     Route: 042
  3. AMIKACIN SULFATE [Suspect]
     Indication: INFECTION PROPHYLAXIS
     Route: 065
  4. BUPIVACAINE HYDROCHLORIDE [Suspect]
     Indication: SPINAL ANAESTHESIA
     Route: 024
  5. LIDOCAINE [Suspect]
     Indication: INFILTRATION ANAESTHESIA
     Route: 065

REACTIONS (2)
  - INTRACRANIAL HYPOTENSION [None]
  - RASH [None]
